FAERS Safety Report 6042907-8 (Version None)
Quarter: 2009Q1

REPORT INFORMATION
  Report Type: 
  Country: None (occurrence: None)
  Receive Date: 20090119
  Receipt Date: 20090112
  Transmission Date: 20090719
  Serious: Yes (Hospitalization)
  Sender: FDA-Public Use
  Company Number: A0763858A

PATIENT
  Sex: Male

DRUGS (3)
  1. WELLBUTRIN SR [Suspect]
     Indication: MENTAL DISORDER
     Dosage: 200MG TWICE PER DAY
     Route: 048
     Dates: start: 20000101, end: 20080801
  2. SEROQUEL [Suspect]
     Indication: MENTAL DISORDER
     Dosage: 400MG TWICE PER DAY
     Route: 065
     Dates: start: 20000101, end: 20080801
  3. ZYPREXA [Suspect]
     Indication: MENTAL DISORDER
     Route: 065
     Dates: start: 20000101, end: 20080801

REACTIONS (6)
  - BALANCE DISORDER [None]
  - CARDIAC DISORDER [None]
  - DEMENTIA [None]
  - LIVER DISORDER [None]
  - SKIN PAPILLOMA [None]
  - VISUAL ACUITY REDUCED [None]
